FAERS Safety Report 5849820-7 (Version None)
Quarter: 2008Q3

REPORT INFORMATION
  Report Type: 
  Country: None (occurrence: None)
  Receive Date: 20080815
  Receipt Date: 20080729
  Transmission Date: 20090109
  Serious: Yes (Hospitalization)
  Sender: FDA-Public Use
  Company Number: 2008-179144-NL

PATIENT
  Sex: Female

DRUGS (4)
  1. MARVELON          (BATCH #S: 192396/192036, 180079/165071) [Suspect]
     Indication: PREMATURE MENOPAUSE
     Dosage: 1 DF
     Dates: start: 20080501, end: 20080501
  2. MARVELON          (BATCH #S: 192396/192036, 180079/165071) [Suspect]
     Indication: PREMATURE MENOPAUSE
     Dosage: 1 DF
     Dates: start: 20010101
  3. MARVELON (BATCH #S: 192396/192036, 180079/165071) [Suspect]
  4. ATENOLOL [Concomitant]

REACTIONS (9)
  - ACUTE STRESS DISORDER [None]
  - DIARRHOEA [None]
  - DRUG EFFECT DECREASED [None]
  - DRUG INEFFECTIVE [None]
  - FEELING HOT [None]
  - HYPERTENSION [None]
  - MALAISE [None]
  - PHARMACEUTICAL PRODUCT COMPLAINT [None]
  - WEIGHT INCREASED [None]
